FAERS Safety Report 5229383-X (Version None)
Quarter: 2007Q1

REPORT INFORMATION
  Report Type: 
  Country: None (occurrence: None)
  Receive Date: 20061201
  Receipt Date: 20060911
  Transmission Date: 20070707
  Serious: No
  Sender: FDA-Public Use
  Company Number: 2006PV021090

PATIENT
  Age: 51 Year
  Sex: Male

DRUGS (4)
  1. BYETTA [Suspect]
     Indication: DRUG USE FOR UNKNOWN INDICATION
     Dosage: SEE IMAGE
     Route: 058
     Dates: start: 20060401, end: 20060701
  2. BYETTA [Suspect]
     Indication: DRUG USE FOR UNKNOWN INDICATION
     Dosage: SEE IMAGE
     Route: 058
     Dates: start: 20060701
  3. GLUCOPHAGE [Concomitant]
  4. AVANDIA [Concomitant]

REACTIONS (6)
  - BLOOD GLUCOSE INCREASED [None]
  - DRUG INEFFECTIVE [None]
  - DYSGEUSIA [None]
  - MALAISE [None]
  - NAUSEA [None]
  - WEIGHT DECREASED [None]
